FAERS Safety Report 4959465-9 (Version None)
Quarter: 2006Q1

REPORT INFORMATION
  Report Type: 
  Country: None (occurrence: None)
  Receive Date: 20060331
  Receipt Date: 20051123
  Transmission Date: 20060701
  Serious: Yes (Hospitalization)
  Sender: FDA-Public Use
  Company Number: US-MERCK-0511USA04004

PATIENT
  Age: 66 Year
  Sex: Female
  Weight: 71 kg

DRUGS (43)
  1. VIOXX [Suspect]
     Indication: RHEUMATOID ARTHRITIS
     Route: 048
     Dates: start: 20000307, end: 20041001
  2. ALBUTEROL [Concomitant]
     Route: 065
  3. ALPRAZOLAM [Concomitant]
     Route: 065
  4. AMITRIPTYLIN [Concomitant]
     Route: 065
  5. ASPIRIN [Concomitant]
     Route: 065
  6. ATROVENT [Concomitant]
     Route: 065
  7. ATUSS DM [Concomitant]
     Route: 065
  8. BIAXIN [Concomitant]
     Route: 065
  9. CAPEX SHAMPOO [Concomitant]
     Route: 065
  10. CLARITIN [Concomitant]
     Route: 065
  11. COMBIVENT [Concomitant]
     Route: 065
  12. FOSAMAX [Concomitant]
     Route: 065
  13. GLIPIZIDE [Concomitant]
     Route: 065
  14. GLUCOPHAGE [Concomitant]
     Route: 065
  15. GLUCOTROL [Concomitant]
     Route: 065
  16. GUAIFENEX PSE [Concomitant]
     Route: 065
  17. HUMIBID L.A. [Concomitant]
     Route: 065
  18. HYDROCODONE BITARTRATE AND PHENYLEPHRINE HYDROCHLORIDE [Concomitant]
     Route: 065
  19. ISOSORBIDE MONONITRATE [Concomitant]
     Route: 065
  20. LEXAPRO [Concomitant]
     Route: 065
  21. METFORMIN [Concomitant]
     Route: 065
  22. METOCLOPRAMIDE [Concomitant]
     Route: 065
  23. NASONEX [Concomitant]
     Route: 065
  24. NEXIUM [Concomitant]
     Route: 065
  25. NITROQUICK [Concomitant]
     Route: 065
  26. ACETAMINOPHEN AND OXYCODONE HYDROCHLORIDE [Concomitant]
     Route: 065
  27. PANMIST DM [Concomitant]
     Route: 065
  28. PAXIL [Concomitant]
     Route: 065
  29. POLYETHYLENE GLYCOL 3350 [Concomitant]
     Route: 065
  30. ELECTROLYTES (UNSPECIFIED) [Concomitant]
     Route: 065
  31. PRAVACHOL [Concomitant]
     Route: 065
  32. PREMARIN [Concomitant]
     Route: 065
  33. PROMETHAZINE W/DM [Concomitant]
     Route: 065
  34. ACETAMINOPHEN AND PROPOXYPHENE HYDROCHLORIDE [Concomitant]
     Route: 065
  35. PROTONIX [Concomitant]
     Route: 065
  36. PROVENTIL [Concomitant]
     Route: 065
  37. Q-BID DM [Concomitant]
     Route: 065
  38. SUDAL [Concomitant]
     Route: 065
  39. TEQUIN [Concomitant]
     Route: 065
  40. TOPROL-XL [Concomitant]
     Route: 065
  41. TRAMADOLOR [Concomitant]
     Route: 065
  42. ZITHROMAX [Concomitant]
     Route: 065
  43. ZYRTEC [Concomitant]
     Route: 065

REACTIONS (24)
  - ACUTE MYOCARDIAL INFARCTION [None]
  - ANGINA PECTORIS [None]
  - BLOOD CHOLESTEROL INCREASED [None]
  - CARDIAC FAILURE CONGESTIVE [None]
  - CHEST PAIN [None]
  - CHOLELITHIASIS [None]
  - CORONARY ARTERY OCCLUSION [None]
  - CORONARY ARTERY STENOSIS [None]
  - DIABETES MELLITUS INADEQUATE CONTROL [None]
  - DRUG INEFFECTIVE [None]
  - EXERCISE TOLERANCE DECREASED [None]
  - HYPERCHOLESTEROLAEMIA [None]
  - HYPERTENSION [None]
  - LOW DENSITY LIPOPROTEIN INCREASED [None]
  - MITRAL VALVE INCOMPETENCE [None]
  - OTITIS EXTERNA [None]
  - PANIC DISORDER [None]
  - PULMONARY CONGESTION [None]
  - RHINITIS ALLERGIC [None]
  - TOBACCO ABUSE [None]
  - VENTRICULAR DYSFUNCTION [None]
  - VENTRICULAR DYSKINESIA [None]
  - VENTRICULAR EXTRASYSTOLES [None]
  - VENTRICULAR HYPERTROPHY [None]
